FAERS Safety Report 11132029 (Version 1)
Quarter: 2015Q2

REPORT INFORMATION
  Report Type: Spontaneous
  Country: US (occurrence: US)
  Receive Date: 20150522
  Receipt Date: 20150522
  Transmission Date: 20150821
  Serious: No
  Sender: FDA-Public Use
  Company Number: US-TARO-2014TAR00577

PATIENT
  Sex: Female
  Weight: 89.8 kg

DRUGS (4)
  1. DEXILANT [Suspect]
     Active Substance: DEXLANSOPRAZOLE
     Dosage: 60 MG, 1X/DAY
     Dates: start: 201404, end: 20141116
  2. CARBAMAZEPINE ER [Suspect]
     Active Substance: CARBAMAZEPINE
     Indication: BRAIN OEDEMA
     Dosage: 400 MG, 2X/DAY
     Route: 048
     Dates: start: 2000
  3. CRESTOR [Suspect]
     Active Substance: ROSUVASTATIN CALCIUM
     Dosage: 20 MG, 1X/DAY
     Dates: start: 2011
  4. LISINOPRIL. [Suspect]
     Active Substance: LISINOPRIL
     Dosage: 5 MG, 1X/DAY
     Dates: start: 2011, end: 20141118

REACTIONS (6)
  - Hearing impaired [Recovering/Resolving]
  - Oedema peripheral [Recovering/Resolving]
  - Off label use [Not Recovered/Not Resolved]
  - Drug hypersensitivity [Recovering/Resolving]
  - Metamorphopsia [Recovering/Resolving]
  - Vision blurred [Recovering/Resolving]

NARRATIVE: CASE EVENT DATE: 2000
